FAERS Safety Report 4923753-2 (Version None)
Quarter: 2006Q1

REPORT INFORMATION
  Report Type: 
  Country: None (occurrence: None)
  Receive Date: 20060227
  Receipt Date: 20051114
  Transmission Date: 20060701
  Serious: Yes (Hospitalization)
  Sender: FDA-Public Use
  Company Number: US-MERCK-0511USA02451

PATIENT
  Age: 66 Year
  Sex: Female
  Weight: 68 kg

DRUGS (2)
  1. VIOXX [Suspect]
     Indication: ARTHRALGIA
     Route: 048
     Dates: start: 19991104, end: 20000912
  2. ADVIL [Concomitant]
     Route: 065

REACTIONS (3)
  - HEART RATE INCREASED [None]
  - LARGE INTESTINAL HAEMORRHAGE [None]
  - RENAL FAILURE [None]
